FAERS Safety Report 6743623-7 (Version None)
Quarter: 2010Q2

REPORT INFORMATION
  Report Type: 
  Country: None (occurrence: None)
  Receive Date: 20100527
  Receipt Date: 20100519
  Transmission Date: 20101027
  Serious: Yes (Other)
  Sender: FDA-Public Use
  Company Number: US-ROCHE-704938

PATIENT
  Sex: Male
  Weight: 71.7 kg

DRUGS (7)
  1. CEFTRIAXONE SODIUM [Suspect]
     Route: 042
     Dates: start: 20100514
  2. RILUTEK [Concomitant]
  3. TOPROL-XL [Concomitant]
  4. THYROID TAB [Concomitant]
     Dosage: DRUG REPORTED AS ARMOR THYROID
  5. QUINIDINE HCL [Concomitant]
     Dosage: DRUG REPORTED AS DESTROM/QUINIDINE
  6. ASPIRIN [Concomitant]
     Dosage: DRUG REPORTED AS BABY ASPIRIN
  7. DICYCLOMINE [Concomitant]

REACTIONS (1)
  - ANURIA [None]
